FAERS Safety Report 15206745 (Version 4)
Quarter: 2022Q1

REPORT INFORMATION
  Report Type: Spontaneous
  Country: ES (occurrence: ES)
  Receive Date: 20180727
  Receipt Date: 20220314
  Transmission Date: 20220423
  Serious: Yes (Life-Threatening, Hospitalization, Other)
  Sender: FDA-Public Use
  Company Number: ES-AUROBINDO-AUR-APL-2018-037674

PATIENT
  Age: 66 Year
  Sex: Male
  Weight: 80 kg

DRUGS (5)
  1. PANTOPRAZOLE [Interacting]
     Active Substance: PANTOPRAZOLE
     Indication: Gastrooesophageal reflux disease
     Dosage: 40 MILLIGRAM, ONCE A DAY
     Route: 048
     Dates: start: 201510, end: 20180305
  2. ALLOPURINOL [Interacting]
     Active Substance: ALLOPURINOL
     Indication: Hyperuricaemia
     Dosage: 200 MILLIGRAM, ONCE A DAY
     Route: 048
     Dates: start: 201605
  3. ACENOCOUMAROL [Interacting]
     Active Substance: ACENOCOUMAROL
     Indication: Atrial fibrillation
     Dosage: 4 MILLIGRAM, ONCE A DAY
     Route: 048
     Dates: start: 201207, end: 20180305
  4. DIGOXIN [Concomitant]
     Active Substance: DIGOXIN
     Indication: Atrial fibrillation
     Dosage: 0.25 MILLIGRAM, 72 HOUR
     Route: 048
     Dates: start: 20180126, end: 20180305
  5. HYDRALAZINE HYDROCHLORIDE [Concomitant]
     Active Substance: HYDRALAZINE HYDROCHLORIDE
     Indication: Essential hypertension
     Dosage: 25 MILLIGRAM, 3 TIMES A DAY
     Route: 048
     Dates: start: 20180126, end: 20180305

REACTIONS (1)
  - Subdural haemorrhage [Recovering/Resolving]

NARRATIVE: CASE EVENT DATE: 20180304
